FAERS Safety Report 19457689 (Version 2)
Quarter: 2021Q3

REPORT INFORMATION
  Report Type: Spontaneous
  Country: CN (occurrence: CN)
  Receive Date: 20210624
  Receipt Date: 20210702
  Transmission Date: 20211014
  Serious: Yes (Other)
  Sender: FDA-Public Use
  Company Number: CN-009507513-2106CHN004491

PATIENT
  Age: 13 Year
  Sex: Male
  Weight: 45 kg

DRUGS (7)
  1. POSACONAZOLE [Suspect]
     Active Substance: POSACONAZOLE
     Indication: ANTIFUNGAL PROPHYLAXIS
     Dosage: 200 MG/TIME (5 ML/TIME), TID
     Route: 048
     Dates: start: 201812, end: 20190101
  2. CYCLOPHOSPHAMIDE. [Concomitant]
     Active Substance: CYCLOPHOSPHAMIDE
     Indication: ACUTE LYMPHOCYTIC LEUKAEMIA
     Dosage: 200 MG/M^2/D (ACTUALLY ADMINISTRATED 270 MG, INTRAVENOUS PUMPING (Q12H, D2?4))
     Route: 040
     Dates: start: 20181224
  3. METHOTREXATE. [Concomitant]
     Active Substance: METHOTREXATE
     Indication: ACUTE LYMPHOCYTIC LEUKAEMIA
     Dosage: 5 G/M^2/D (ACTUALLY ADMINISTRATED 6.75 G, INTRAVENOUS PUMPING (D1))
     Route: 040
     Dates: start: 20181224
  4. PEGASPARGASE [Concomitant]
     Active Substance: PEGASPARGASE
     Indication: ACUTE LYMPHOCYTIC LEUKAEMIA
     Dosage: 2500 U/M^2/D (ACTUALLY ADMINISTRATED 2500 U, IM (D6))
     Route: 030
     Dates: start: 20181224
  5. VINCRISTINE [Interacting]
     Active Substance: VINCRISTINE
     Indication: ACUTE LYMPHOCYTIC LEUKAEMIA
     Dosage: 1.5 MG/M^2/D (ACTUALLY ADMINISTRATED 2 MG, IV(D1, D6))
     Route: 042
     Dates: start: 20181224
  6. DEXAMETHASONE. [Concomitant]
     Active Substance: DEXAMETHASONE
     Indication: ACUTE LYMPHOCYTIC LEUKAEMIA
     Dosage: 20 MG/M^2/D (ACTUALLY ADMINISTRATED 27 MG, PO (D1?5))
     Route: 048
     Dates: start: 20181224
  7. CYTARABINE. [Concomitant]
     Active Substance: CYTARABINE
     Indication: ACUTE LYMPHOCYTIC LEUKAEMIA
     Dosage: 2 G/M^2/D (ACTUALLY ADMINISTRATED 2.7 G, INTRAVENOUS PUMPING (Q12H, D5))
     Route: 040
     Dates: start: 20181224

REACTIONS (2)
  - Drug interaction [Recovering/Resolving]
  - Neurotoxicity [Recovering/Resolving]

NARRATIVE: CASE EVENT DATE: 20181226
